FAERS Safety Report 16478232 (Version 1)
Quarter: 2019Q2

REPORT INFORMATION
  Report Type: Spontaneous
  Country: DE (occurrence: DE)
  Receive Date: 20190626
  Receipt Date: 20190626
  Transmission Date: 20190711
  Serious: Yes (Other)
  Sender: FDA-Public Use
  Company Number: DE-TEVA-2019-DE-1068182

PATIENT
  Sex: Female

DRUGS (1)
  1. OLMESARTAN 10 MG [Suspect]
     Active Substance: OLMESARTAN

REACTIONS (1)
  - Autoimmune hepatitis [Unknown]
